FAERS Safety Report 4601559-1 (Version None)
Quarter: 2005Q1

REPORT INFORMATION
  Report Type: 
  Country: None (occurrence: None)
  Receive Date: 20050308
  Receipt Date: 20041229
  Transmission Date: 20050727
  Serious: Yes (Other)
  Sender: FDA-Public Use
  Company Number: PHFR2004GB04710

PATIENT
  Age: 33 Year
  Sex: Male

DRUGS (6)
  1. DEPAKOTE [Concomitant]
     Indication: MOOD SWINGS
     Dosage: 500 MG, BID
     Route: 048
     Dates: start: 20041201
  2. DIAZEPAM [Concomitant]
     Indication: BACK PAIN
     Dosage: 2 MG, BID
     Route: 048
     Dates: start: 20041201
  3. ARIPIPRAZOLE [Concomitant]
     Indication: PSYCHOTIC DISORDER
     Dosage: 30 MG, QD
     Route: 048
     Dates: start: 20041101, end: 20050201
  4. SENNA [Concomitant]
     Indication: CONSTIPATION
  5. PROCYCLIDINE HYDROCHLORIDE 2MG TAB [Concomitant]
     Indication: EXTRAPYRAMIDAL DISORDER
     Route: 048
  6. CLOZARIL [Suspect]
     Indication: SCHIZOPHRENIA
     Route: 048
     Dates: start: 20030411, end: 20041121

REACTIONS (3)
  - BLOOD CHOLESTEROL INCREASED [None]
  - BLOOD TRIGLYCERIDES INCREASED [None]
  - HYPERLIPIDAEMIA [None]
